FAERS Safety Report 8259989-5 (Version None)
Quarter: 2012Q2

REPORT INFORMATION
  Report Type: 
  Country: None (occurrence: None)
  Receive Date: 20120404
  Receipt Date: 20120330
  Transmission Date: 20120825
  Serious: Yes (Other)
  Sender: FDA-Public Use
  Company Number: US-BAYER-2012-032298

PATIENT
  Age: 64 Year
  Sex: Female
  Weight: 90.703 kg

DRUGS (7)
  1. ULTRAVIST 150 [Suspect]
     Indication: NAUSEA
  2. ULTRAVIST 150 [Suspect]
     Indication: RECTAL HAEMORRHAGE
  3. ZETIA [Concomitant]
  4. BARIUM [Concomitant]
     Indication: COMPUTERISED TOMOGRAM ABDOMEN
     Dosage: UNK
     Route: 048
     Dates: start: 20120330, end: 20120330
  5. ULTRAVIST 150 [Suspect]
     Indication: COMPUTERISED TOMOGRAM ABDOMEN
     Dosage: 100 ML, ONCE
     Route: 042
     Dates: start: 20120330, end: 20120330
  6. ULTRAVIST 150 [Suspect]
     Indication: PELVIC PAIN
  7. ULTRAVIST 150 [Suspect]
     Indication: ABDOMINAL PAIN

REACTIONS (7)
  - LIP SWELLING [None]
  - DIZZINESS [None]
  - DYSPHAGIA [None]
  - ERYTHEMA [None]
  - HYPERSENSITIVITY [None]
  - PRURITUS [None]
  - FEELING HOT [None]
